FAERS Safety Report 6135106-2 (Version None)
Quarter: 2009Q1

REPORT INFORMATION
  Report Type: 
  Country: None (occurrence: None)
  Receive Date: 20090327
  Receipt Date: 20090316
  Transmission Date: 20090719
  Serious: Yes (Death)
  Sender: FDA-Public Use
  Company Number: EG-ROCHE-622834

PATIENT

DRUGS (3)
  1. PEG-INTERFERON ALFA 2A (RO 25-8310) [Suspect]
     Dosage: ADMINISTERED FOR 36 WEEKS
     Route: 065
  2. NITAZOXANIDE [Suspect]
     Dosage: ADMINISTERED WITH FOOD FOR 12 WEEKS AS PART OF MONOTHERAPY LEAD-IN PHASE
     Route: 048
  3. NITAZOXANIDE [Suspect]
     Dosage: COMBINATION THERAPY
     Route: 048

REACTIONS (1)
  - ROAD TRAFFIC ACCIDENT [None]
